FAERS Safety Report 7735105-0 (Version None)
Quarter: 2011Q3

REPORT INFORMATION
  Report Type: 
  Country: None (occurrence: None)
  Receive Date: 20110907
  Receipt Date: 20110825
  Transmission Date: 20111222
  Serious: Yes (Hospitalization)
  Sender: FDA-Public Use
  Company Number: US-CELGENEUS-163-AB007-11083079

PATIENT
  Sex: Male
  Weight: 68.236 kg

DRUGS (21)
  1. HYDROCODONE BITARTRATE AND ACETAMINOPHEN [Concomitant]
     Indication: PAIN
     Dosage: 5/325  1-2
     Route: 048
  2. AVELOX [Concomitant]
     Route: 048
     Dates: start: 20110819
  3. VICODIN [Concomitant]
     Indication: PAIN
     Route: 065
     Dates: start: 20110825
  4. DEXAMETHASONE [Concomitant]
     Dosage: 4 MILLIGRAM
     Route: 065
  5. ABRAXANE [Suspect]
     Dosage: 460 MILLIGRAM
     Route: 065
     Dates: start: 20110801
  6. GABAPENTIN [Concomitant]
     Indication: PAIN
     Dosage: 300 MILLIGRAM
     Route: 065
  7. ASPIRIN [Concomitant]
     Dosage: 81 MILLIGRAM
     Route: 065
  8. COLACE [Concomitant]
     Dosage: 100 MILLIGRAM
     Route: 065
  9. CARBOPLATIN [Suspect]
     Route: 065
     Dates: start: 20110801
  10. DILTIAZEM [Concomitant]
     Dosage: 1
     Route: 048
  11. CILOSTAZOL [Concomitant]
     Dosage: 100 MILLIGRAM
     Route: 065
  12. METOPROLOL [Concomitant]
     Dosage: 100 MILLIGRAM
     Route: 065
  13. CLONIDINE [Concomitant]
     Dosage: 0.3
     Route: 048
  14. RANITIDINE [Concomitant]
     Dosage: 150 MILLIGRAM
     Route: 065
  15. RED BLOOD CELLS [Concomitant]
     Dosage: 1 UNIT
     Route: 041
  16. CHANTIX [Concomitant]
     Route: 065
  17. SIMVASTATIN [Concomitant]
     Dosage: 20 MILLIGRAM
     Route: 065
  18. PLAVIX [Concomitant]
     Dosage: 75 MILLIGRAM
     Route: 065
  19. MOXIFLOXACIN [Concomitant]
     Route: 065
  20. PROCHLORPERAZINE [Concomitant]
     Indication: NAUSEA
     Dosage: 1
     Route: 048
  21. HYDRALAZINE HCL [Concomitant]
     Dosage: 25 MILLIGRAM
     Route: 065

REACTIONS (1)
  - ABDOMINAL PAIN [None]
